FAERS Safety Report 9695379 (Version 2)
Quarter: 2013Q4

REPORT INFORMATION
  Report Type: Spontaneous
  Country: JP (occurrence: JP)
  Receive Date: 20131119
  Receipt Date: 20131119
  Transmission Date: 20140711
  Serious: Yes (Other)
  Sender: FDA-Public Use
  Company Number: JP-ELI_LILLY_AND_COMPANY-JP201310005928

PATIENT
  Age: 77 Year
  Sex: Male

DRUGS (4)
  1. ZYPREXA [Suspect]
     Indication: SCHIZOPHRENIA
     Dosage: 5 MG, QD
     Route: 048
  2. BROTIZOLAM [Suspect]
     Indication: INSOMNIA
     Dosage: UNK
  3. FUROSEMID                          /00032601/ [Concomitant]
     Indication: HYPERTENSION
     Dosage: UNK
  4. ARTIST [Concomitant]
     Indication: ANGINA PECTORIS
     Dosage: UNK

REACTIONS (1)
  - Respiratory depression [Recovered/Resolved]
